FAERS Safety Report 5398338-7 (Version None)
Quarter: 2007Q3

REPORT INFORMATION
  Report Type: 
  Country: None (occurrence: None)
  Receive Date: 20070726
  Receipt Date: 20070712
  Transmission Date: 20080115
  Serious: Yes (Hospitalization)
  Sender: FDA-Public Use
  Company Number: JP-GENENTECH-244677

PATIENT
  Age: 63 Year
  Sex: Female
  Weight: 49 kg

DRUGS (14)
  1. BEVACIZUMAB [Suspect]
     Indication: COLON CANCER METASTATIC
     Dosage: 488 MG, Q14D
     Route: 042
     Dates: start: 20070307
  2. OXALIPLATIN [Suspect]
     Indication: COLON CANCER METASTATIC
     Dosage: 118 MG, Q14D
     Route: 042
     Dates: start: 20070307
  3. ISOVORIN [Suspect]
     Indication: COLON CANCER METASTATIC
     Dosage: 139 MG, UNK
     Route: 042
     Dates: start: 20070307
  4. FLUOROURACIL [Suspect]
     Indication: COLON CANCER METASTATIC
     Dosage: 834 MG, UNK
     Route: 042
     Dates: start: 20070307
  5. FLUOROURACIL [Suspect]
     Dosage: 556 MG, UNK
     Route: 042
  6. SOLANAX [Concomitant]
     Indication: DRUG USE FOR UNKNOWN INDICATION
  7. GASCON [Concomitant]
     Indication: DRUG USE FOR UNKNOWN INDICATION
  8. MAGNESIUM OXIDE [Concomitant]
     Indication: DRUG USE FOR UNKNOWN INDICATION
  9. OMEPRAZOLE [Concomitant]
     Indication: DRUG USE FOR UNKNOWN INDICATION
  10. VOLTAREN [Concomitant]
     Indication: DRUG USE FOR UNKNOWN INDICATION
     Dates: start: 20070416
  11. KENALOG [Concomitant]
     Indication: DRUG USE FOR UNKNOWN INDICATION
     Dates: start: 20070618
  12. KETOPROFEN [Concomitant]
     Indication: DRUG USE FOR UNKNOWN INDICATION
     Dates: start: 20070619
  13. AZULENE SULFONATE SODIUM [Concomitant]
     Indication: DRUG USE FOR UNKNOWN INDICATION
     Dates: start: 20070622
  14. NAUZELIN [Concomitant]
     Indication: DRUG USE FOR UNKNOWN INDICATION
     Dates: start: 20070704

REACTIONS (2)
  - ANOREXIA [None]
  - PYREXIA [None]
